FAERS Safety Report 9721526 (Version 4)
Quarter: 2014Q2

REPORT INFORMATION
  Report Type: Report from Study
  Country: US (occurrence: US)
  Receive Date: 20131130
  Receipt Date: 20140411
  Transmission Date: 20141212
  Serious: Yes (Hospitalization)
  Sender: FDA-Public Use
  Company Number: US-BRISTOL-MYERS SQUIBB COMPANY-19846625

PATIENT
  Age: 60 Year
  Sex: Male
  Weight: 73 kg

DRUGS (1)
  1. IPILIMUMAB [Suspect]
     Indication: MALIGNANT MELANOMA
     Dosage: LAST DOSE:4NOV13?TOTAL DOSE: 219MG
     Route: 042
     Dates: start: 20131014

REACTIONS (3)
  - Renal failure acute [Recovering/Resolving]
  - Pyrexia [Recovering/Resolving]
  - Cerebrovascular accident [Recovered/Resolved]
